FAERS Safety Report 5739389-X (Version None)
Quarter: 2008Q2

REPORT INFORMATION
  Report Type: 
  Country: None (occurrence: None)
  Receive Date: 20080515
  Receipt Date: 20080508
  Transmission Date: 20081010
  Serious: Yes (Hospitalization, Other)
  Sender: FDA-Public Use
  Company Number: US-PFIZER INC-2008029457

PATIENT
  Sex: Male

DRUGS (3)
  1. NORVASC [Suspect]
  2. ATENOLOL [Concomitant]
  3. LISINOPRIL [Concomitant]

REACTIONS (3)
  - ALOPECIA [None]
  - BLOOD PRESSURE INCREASED [None]
  - UNEVALUABLE EVENT [None]
